FAERS Safety Report 22113096 (Version 1)
Quarter: 2023Q1

REPORT INFORMATION
  Report Type: Spontaneous
  Country: FR (occurrence: FR)
  Receive Date: 20230320
  Receipt Date: 20230320
  Transmission Date: 20230417
  Serious: Yes (Other)
  Sender: FDA-Public Use
  Company Number: FR-Shilpa Medicare Limited-SML-FR-2023-00314

PATIENT
  Sex: Female

DRUGS (6)
  1. DOCETAXEL [Suspect]
     Active Substance: DOCETAXEL
     Indication: HER2 positive breast cancer
  2. TRASTUZUMAB [Suspect]
     Active Substance: TRASTUZUMAB
     Indication: HER2 positive breast cancer
  3. PERTUZUMAB [Suspect]
     Active Substance: PERTUZUMAB
     Indication: HER2 positive breast cancer
     Dosage: OVER 60MINUTES
  4. PERTUZUMAB [Suspect]
     Active Substance: PERTUZUMAB
     Dosage: OVER 30-60MINUTES
  5. CARBOPLATIN [Suspect]
     Active Substance: CARBOPLATIN
     Indication: HER2 positive breast cancer
     Dosage: DOSE OF AUC (AREA UNDER THE PLASMA CONCENTRATION-TIME CURVE) 6 MG/ML X MIN
  6. PEGFILGRASTIM [Concomitant]
     Active Substance: PEGFILGRASTIM
     Indication: Product used for unknown indication
     Dosage: 24-72 HOURS AFTER EVERY CYCLE OF TREATMENT.

REACTIONS (1)
  - Rash macular [Unknown]
